FAERS Safety Report 10761790 (Version 1)
Quarter: 2015Q1

REPORT INFORMATION
  Report Type: Spontaneous
  Country: US (occurrence: None)
  Receive Date: 20150203
  Receipt Date: 20150203
  Transmission Date: 20150721
  Serious: Yes (Hospitalization)
  Sender: FDA-Public Use
  Company Number: None

PATIENT
  Age: 55 Year
  Sex: Male
  Weight: 236 kg

DRUGS (11)
  1. WARFARIN 5MG [Suspect]
     Active Substance: WARFARIN
     Indication: DEEP VEIN THROMBOSIS
     Dosage: 1
     Route: 048
  2. AMLODIPINE-BENAZEPRIL (LOTREL) [Concomitant]
  3. ALLOPURINOL (ZYLOPRIM) [Concomitant]
  4. METOLAZONE (ZAROXOLYN) [Concomitant]
  5. BUMETANIDE (BUMEX) [Concomitant]
  6. METFORMIN (GLUCOPHAGE) [Concomitant]
  7. GLIPIZIDE (GLUCOTROL) [Concomitant]
  8. INDOMETHACIN (INDOCIN) [Concomitant]
  9. CHOLECALCIFEROL (VITAMIN D3) [Concomitant]
  10. POTASSIUM CHLORIDE. [Concomitant]
     Active Substance: POTASSIUM CHLORIDE
  11. TRIAMCINOLONE (ARISTOCORT) [Concomitant]

REACTIONS (5)
  - Flank pain [None]
  - Haematuria [None]
  - Nausea [None]
  - International normalised ratio increased [None]
  - Chromaturia [None]

NARRATIVE: CASE EVENT DATE: 20140307
